FAERS Safety Report 26063910 (Version 1)
Quarter: 2025Q4

REPORT INFORMATION
  Report Type: Spontaneous
  Country: US (occurrence: US)
  Receive Date: 20251119
  Receipt Date: 20251119
  Transmission Date: 20260118
  Serious: Yes (Death, Other)
  Sender: GILEAD
  Company Number: US-GILEAD-2025-0737232

PATIENT
  Age: 47 Year
  Sex: Male

DRUGS (1)
  1. LENACAPAVIR [Suspect]
     Active Substance: LENACAPAVIR
     Indication: Product used for unknown indication
     Dosage: 463.5 MG/1.5ML
     Route: 058
     Dates: start: 20251009

REACTIONS (2)
  - Cardiac arrest [Fatal]
  - End stage renal disease [Fatal]

NARRATIVE: CASE EVENT DATE: 20251105
